FAERS Safety Report 8553028-4 (Version None)
Quarter: 2012Q3

REPORT INFORMATION
  Report Type: 
  Country: None (occurrence: None)
  Receive Date: 20120731
  Receipt Date: 20120727
  Transmission Date: 20120928
  Serious: Yes (Hospitalization, Other)
  Sender: FDA-Public Use
  Company Number: DE-ABBOTT-12P-062-0956531-00

PATIENT
  Age: 40 Year
  Weight: 77 kg

DRUGS (2)
  1. HUMIRA [Suspect]
     Indication: PRODUCT USED FOR UNKNOWN INDICATION
     Dosage: 1IN 2 WEEKS, 1ST DOSE 160MG, 2ND 80MG
     Route: 058
     Dates: start: 20101214, end: 20101214
  2. HUMIRA [Suspect]
     Dates: end: 20120415

REACTIONS (3)
  - POSTOPERATIVE WOUND INFECTION [None]
  - INTESTINAL ANASTOMOSIS COMPLICATION [None]
  - SURGICAL FAILURE [None]
